FAERS Safety Report 9166453 (Version 2)
Quarter: 2013Q1

REPORT INFORMATION
  Report Type: Spontaneous
  Country: NL (occurrence: NL)
  Receive Date: 20130315
  Receipt Date: 20130321
  Transmission Date: 20140127
  Serious: Yes (Other)
  Sender: FDA-Public Use
  Company Number: NL-BAYER-2013-032920

PATIENT
  Age: 41 Year
  Sex: Male

DRUGS (2)
  1. ULTRAVIST-300 [Suspect]
     Indication: COMPUTERISED TOMOGRAM
     Dosage: 80 ML, ONCE
     Route: 042
     Dates: start: 20130307, end: 20130307
  2. ULTRAVIST-300 [Suspect]
     Indication: URINARY TRACT DISORDER

REACTIONS (7)
  - Respiratory tract congestion [Recovered/Resolved]
  - Erythema [Recovered/Resolved]
  - Swelling face [Recovered/Resolved]
  - Eye pruritus [Recovered/Resolved]
  - Rhinorrhoea [None]
  - Urticaria [Recovered/Resolved]
  - Throat irritation [Recovered/Resolved]
